FAERS Safety Report 9435130 (Version 1)
Quarter: 2013Q3

REPORT INFORMATION
  Report Type: Spontaneous
  Country: US (occurrence: US)
  Receive Date: 20130801
  Receipt Date: 20130801
  Transmission Date: 20140515
  Serious: Yes (Other)
  Sender: FDA-Public Use
  Company Number: CHPA2013US011850

PATIENT
  Age: 73 Year
  Sex: Female

DRUGS (4)
  1. EXCEDRIN MIGRAINE [Suspect]
     Indication: MIGRAINE
     Dosage: 2 DF, PRN
     Route: 048
     Dates: start: 1998
  2. EXCEDRIN MIGRAINE [Suspect]
     Dosage: 2 DF, BID
     Route: 048
  3. ANTIHYPERTENSIVE DRUGS [Concomitant]
     Dosage: UNK, UNK
  4. MUSCLE RELAXANTS [Concomitant]

REACTIONS (6)
  - Hypertension [Recovered/Resolved]
  - Urinary tract infection [Not Recovered/Not Resolved]
  - Anxiety [Not Recovered/Not Resolved]
  - Spinal pain [Not Recovered/Not Resolved]
  - Headache [Not Recovered/Not Resolved]
  - Overdose [Unknown]
